FAERS Safety Report 9585788 (Version 2)
Quarter: 2013Q4

REPORT INFORMATION
  Report Type: Spontaneous
  Country: DE (occurrence: None)
  Receive Date: 20131001
  Receipt Date: 20131018
  Transmission Date: 20140711
  Serious: Yes (Hospitalization)
  Sender: FDA-Public Use
  Company Number: DSM-2013-00876

PATIENT
  Age: 80 Year
  Sex: Female

DRUGS (6)
  1. OLMESARTAN MEDOXOMIL, AMLODIPINE BESILATE [Suspect]
     Indication: HYPERTENSION
     Route: 048
     Dates: start: 2007, end: 20100607
  2. ASPIRIN (ACETYLSALICYLIC ACID)(100 MILLIGRAM)(ACETYLSALICYLIC ACID) [Concomitant]
  3. HYDROCHLOROTHIAZIDE (HYDROCHLOROTHIAZIDE)(25 MILLIGRAM)(HYDROCHLOROTHIAZIDE) [Concomitant]
  4. PREDNIGALEN (PREDNISONE)(25 MILLIGRAM)(PREDNISO] 1) 25 MG (25 MG,L IN 1 D),UNKNOWN [Concomitant]
  5. PANTOPRAZO L(PANTOPRAZOLE SODIUM)(20 [Concomitant]
  6. FOLIC ACID (FOLIC ACID)(FOLIC ACID) [Concomitant]

REACTIONS (2)
  - Pancreatitis acute [None]
  - Toxicity to various agents [None]
